FAERS Safety Report 17444594 (Version 1)
Quarter: 2020Q1

REPORT INFORMATION
  Report Type: Spontaneous
  Country: US (occurrence: US)
  Receive Date: 20200221
  Receipt Date: 20200221
  Transmission Date: 20200409
  Serious: Yes (Death)
  Sender: FDA-Public Use
  Company Number: None

PATIENT
  Age: 72 Year
  Sex: Female
  Weight: 36.2 kg

DRUGS (2)
  1. CERTOLIZUMAB PEGOL [Suspect]
     Active Substance: CERTOLIZUMAB PEGOL
     Indication: RHEUMATOID ARTHRITIS
     Dosage: ?          OTHER FREQUENCY:EVERY 30 DAYS;?
     Route: 058
     Dates: start: 20171017, end: 20191106
  2. CIMZIA [Concomitant]
     Active Substance: CERTOLIZUMAB PEGOL
     Dates: start: 20171017, end: 20191106

REACTIONS (5)
  - Asthma [None]
  - Respiratory distress [None]
  - Immunodeficiency [None]
  - Pneumonia [None]
  - Pneumonia pseudomonal [None]

NARRATIVE: CASE EVENT DATE: 20191228
